FAERS Safety Report 6821057-4 (Version None)
Quarter: 2010Q3

REPORT INFORMATION
  Report Type: 
  Country: None (occurrence: None)
  Receive Date: 20100707
  Receipt Date: 20071102
  Transmission Date: 20110219
  Serious: No
  Sender: FDA-Public Use
  Company Number: US-PFIZER INC-2007093103

PATIENT

DRUGS (4)
  1. ZOLOFT [Suspect]
  2. XANAX [Interacting]
  3. FENTANYL [Interacting]
  4. VERSED [Interacting]

REACTIONS (2)
  - AGITATION [None]
  - DRUG INTERACTION [None]
